FAERS Safety Report 18309976 (Version 2)
Quarter: 2020Q3

REPORT INFORMATION
  Report Type: Spontaneous
  Country: JP (occurrence: ES)
  Receive Date: 20200924
  Receipt Date: 20200929
  Transmission Date: 20201103
  Serious: Yes (Life-Threatening)
  Sender: FDA-Public Use
  Company Number: ES-ELI_LILLY_AND_COMPANY-ES202009010698

PATIENT
  Sex: Male

DRUGS (3)
  1. TIROFIBAN [Suspect]
     Active Substance: TIROFIBAN
     Indication: ACUTE MYOCARDIAL INFARCTION
     Dosage: 42 ML, TOTAL
     Route: 042
     Dates: start: 20200826, end: 20200826
  2. HEPARINA SODICA [Suspect]
     Active Substance: HEPARIN SODIUM
     Indication: THROMBOLYSIS
     Dosage: 9000 INTERNATIONAL UNIT, TOTAL
     Route: 042
     Dates: start: 20200826, end: 20200826
  3. PRASUGREL HYDROCHLORIDE [Suspect]
     Active Substance: PRASUGREL HYDROCHLORIDE
     Indication: ACUTE MYOCARDIAL INFARCTION
     Dosage: 60 MG, TOTAL DOSE
     Route: 048
     Dates: start: 20200826, end: 20200826

REACTIONS (1)
  - Thrombocytopenia [Recovered/Resolved]

NARRATIVE: CASE EVENT DATE: 20200826
